FAERS Safety Report 15223132 (Version 1)
Quarter: 2018Q3

REPORT INFORMATION
  Report Type: Spontaneous
  Country: DE (occurrence: DE)
  Receive Date: 20180731
  Receipt Date: 20180731
  Transmission Date: 20181010
  Serious: Yes (Hospitalization, Other)
  Sender: FDA-Public Use
  Company Number: PHHY2014DE185229

PATIENT
  Age: 57 Year
  Sex: Male
  Weight: 102 kg

DRUGS (9)
  1. BONDRONAT [Concomitant]
     Active Substance: IBANDRONATE SODIUM
     Indication: METASTASES TO BONE
     Dosage: 6 MG, QW3
     Route: 042
     Dates: start: 20140820
  2. GRANISETRON [Concomitant]
     Active Substance: GRANISETRON
     Indication: PREMEDICATION
     Dosage: 3 MG, QW3
     Route: 042
     Dates: start: 20140912
  3. BEVACIZUMAB. [Suspect]
     Active Substance: BEVACIZUMAB
     Indication: LUNG ADENOCARCINOMA
     Dosage: 11200 MG, QW3
     Route: 042
     Dates: start: 20141027
  4. CARBOPLATIN. [Suspect]
     Active Substance: CARBOPLATIN
     Indication: LUNG ADENOCARCINOMA
     Dosage: 440 MG, QW3
     Route: 042
     Dates: start: 20140912
  5. VERGENTAN [Concomitant]
     Active Substance: ALIZAPRIDE HYDROCHLORIDE
     Indication: PREMEDICATION
     Dosage: 50 MG, QW3
     Route: 042
     Dates: start: 20140912
  6. ALIMTA [Suspect]
     Active Substance: PEMETREXED DISODIUM
     Indication: LUNG ADENOCARCINOMA
     Dosage: 1000 MG, QW3
     Route: 042
     Dates: start: 20140912
  7. CARBOPLATIN. [Suspect]
     Active Substance: CARBOPLATIN
     Dosage: 460 MG, QW3 (AUC 4)
     Route: 042
     Dates: start: 20140912
  8. DEXAMETHASON [Concomitant]
     Active Substance: DEXAMETHASONE
     Indication: PREMEDICATION
     Dosage: 8 MG, QW3
     Route: 042
     Dates: start: 20140912
  9. TAVEGIL [Concomitant]
     Active Substance: CLEMASTINE FUMARATE
     Indication: PREMEDICATION
     Dosage: 2 MG, (STARTING ON D3 OF EACH CYCLE)
     Route: 042

REACTIONS (2)
  - Pleural effusion [Recovered/Resolved]
  - Epistaxis [Not Recovered/Not Resolved]

NARRATIVE: CASE EVENT DATE: 20141127
